FAERS Safety Report 7003310-7 (Version None)
Quarter: 2010Q3

REPORT INFORMATION
  Report Type: 
  Country: None (occurrence: None)
  Receive Date: 20100920
  Receipt Date: 20100908
  Transmission Date: 20110219
  Serious: Yes (Disabling)
  Sender: FDA-Public Use
  Company Number: FR-PFIZER INC-2010014042

PATIENT
  Age: 53 Year
  Sex: Male
  Weight: 97 kg

DRUGS (19)
  1. BLINDED *NO SUBJECT DRUG [Suspect]
     Indication: RENAL CELL CARCINOMA
     Dosage: 37.5 MG PER DAY, SCHEDULE 4/2
     Route: 048
     Dates: start: 20081023, end: 20091029
  2. BLINDED *PLACEBO [Suspect]
     Indication: RENAL CELL CARCINOMA
     Dosage: 37.5 MG PER DAY, SCHEDULE 4/2
     Route: 048
     Dates: start: 20081023, end: 20091029
  3. SUNITINIB MALATE [Suspect]
     Indication: RENAL CELL CARCINOMA
     Dosage: 37.5 MG PER DAY, SCHEDULE 4/2
     Route: 048
     Dates: start: 20081023, end: 20091029
  4. IXPRIM [Concomitant]
     Indication: PAIN
  5. GIVALEX [Concomitant]
     Indication: MUCOSAL INFLAMMATION
     Dosage: UNK
     Dates: start: 20081023
  6. ASPEGIC 1000 [Concomitant]
     Indication: MUCOSAL INFLAMMATION
     Dosage: UNK
     Dates: start: 20081023
  7. SODIUM BICARBONATE [Concomitant]
     Indication: MUCOSAL INFLAMMATION
     Dosage: UNK
     Dates: start: 20081023
  8. METOCLOPRAMIDE [Concomitant]
     Indication: NAUSEA
     Dosage: UNK
     Dates: start: 20081023
  9. DEXERYL ^PIERRE FABRE^ [Concomitant]
     Indication: PALMAR-PLANTAR ERYTHRODYSAESTHESIA SYNDROME
     Dosage: UNK
     Dates: start: 20081023
  10. ESOMEPRAZOLE [Concomitant]
     Indication: ABDOMINAL PAIN UPPER
     Dosage: UNK
     Dates: start: 20081121
  11. LEUCINE [Concomitant]
     Indication: VERTIGO
     Dosage: UNK
     Dates: start: 20081121
  12. DOMPERIDONE [Concomitant]
     Indication: NAUSEA
     Dosage: UNK
     Dates: start: 20081121
  13. METOPIMAZINE [Concomitant]
     Indication: NAUSEA
     Dosage: UNK
     Dates: start: 20081121
  14. HYALURONIC ACID (IALUSET) [Concomitant]
     Indication: PALMAR-PLANTAR ERYTHRODYSAESTHESIA SYNDROME
     Dosage: UNK
     Dates: start: 20081206
  15. LOPERAMIDE [Concomitant]
     Indication: DIARRHOEA
     Dosage: UNK
     Dates: start: 20090130
  16. SPASFON [Concomitant]
     Indication: ABDOMINAL PAIN
     Dosage: UNK
     Dates: start: 20090130
  17. TRIMEBUTINE [Concomitant]
     Indication: ABDOMINAL PAIN
     Dosage: UNK
     Dates: start: 20090130
  18. ALPRAZOLAM [Concomitant]
     Indication: ANXIETY
     Dosage: UNK
     Dates: start: 20090814
  19. ALUMINUM HYDROXIDE AND MAGNESIUM TRISILICATE [Concomitant]
     Indication: DIARRHOEA
     Dosage: UNK
     Dates: start: 20090522

REACTIONS (1)
  - AXONAL NEUROPATHY [None]
